FAERS Safety Report 7135491-9 (Version None)
Quarter: 2010Q4

REPORT INFORMATION
  Report Type: 
  Country: None (occurrence: None)
  Receive Date: 20101119
  Receipt Date: 20101104
  Transmission Date: 20110411
  Serious: Yes (Other)
  Sender: FDA-Public Use
  Company Number: TPH-00302

PATIENT
  Age: 36 Year
  Sex: Female

DRUGS (1)
  1. TRIQUILAR [Suspect]
     Indication: ORAL CONTRACEPTION
     Dosage: ORAL
     Route: 048
     Dates: start: 20080301

REACTIONS (2)
  - HEPATIC NEOPLASM [None]
  - TRANSAMINASES INCREASED [None]
